FAERS Safety Report 12384799 (Version 1)
Quarter: 2016Q2

REPORT INFORMATION
  Report Type: Spontaneous
  Country: US (occurrence: None)
  Receive Date: 20160518
  Receipt Date: 20160518
  Transmission Date: 20160815
  Serious: Yes (Other)
  Sender: FDA-Public Use
  Company Number: None

PATIENT
  Age: 62 Year
  Sex: Female
  Weight: 53.07 kg

DRUGS (1)
  1. OMEGA-3-ACID ETHYL ESTERS (1 GRAM CAP [Suspect]
     Active Substance: OMEGA-3-ACID ETHYL ESTERS
     Indication: HYPERCHOLESTEROLAEMIA
     Route: 048
     Dates: start: 20150525, end: 20150601

REACTIONS (3)
  - Product substitution issue [None]
  - Abdominal pain upper [None]
  - Therapy cessation [None]

NARRATIVE: CASE EVENT DATE: 20150601
